FAERS Safety Report 8977852 (Version 1)
Quarter: 2012Q4

REPORT INFORMATION
  Report Type: 
  Country: US (occurrence: US)
  Receive Date: 20121219
  Receipt Date: 20121219
  Transmission Date: 20130627
  Serious: Yes (Hospitalization, Other)
  Sender: FDA-Public Use
  Company Number: GXBR2012US002418

PATIENT
  Age: 74 None
  Weight: 67.8 kg

DRUGS (6)
  1. ENOXAPARIN SODIUM [Suspect]
     Indication: PULMONARY THROMBOSIS
     Dosage: 80 mg, BID
     Route: 058
     Dates: start: 20120210, end: 201203
  2. ENOXAPARIN SODIUM [Suspect]
     Dosage: 60 mg, QD
     Route: 058
     Dates: start: 201203, end: 201209
  3. WARFARIN [Suspect]
     Indication: PULMONARY THROMBOSIS
     Dosage: 7.5 mg, QD
     Route: 048
     Dates: start: 201202
  4. LISINOPRIL [Concomitant]
     Indication: HYPERTENSION
     Dosage: 40 mg, UNK
     Dates: end: 201209
  5. ATENOLOL [Concomitant]
     Indication: HYPERTENSION
     Dosage: 10 mg, UNK
     Dates: end: 201209
  6. TRICOR [Concomitant]
     Indication: BLOOD CHOLESTEROL INCREASED
     Dosage: UNK DF, UNK
     Dates: end: 201205

REACTIONS (8)
  - Pancreatic pseudocyst [Not Recovered/Not Resolved]
  - Pancreatitis [Not Recovered/Not Resolved]
  - Haemorrhage [Recovered/Resolved]
  - Haematuria [Recovered/Resolved]
  - Blood pressure decreased [Recovered/Resolved]
  - Splenic vein thrombosis [Unknown]
  - Hepatic vein dilatation [Unknown]
  - Weight decreased [Not Recovered/Not Resolved]
